FAERS Safety Report 7245137-7 (Version None)
Quarter: 2011Q1

REPORT INFORMATION
  Report Type: 
  Country: None (occurrence: None)
  Receive Date: 20110126
  Receipt Date: 20110117
  Transmission Date: 20110831
  Serious: Yes (Life-Threatening)
  Sender: FDA-Public Use
  Company Number: US-NAPPMUNDI-USA-2011-0062405

PATIENT

DRUGS (1)
  1. OXYCONTIN [Suspect]
     Indication: PRODUCT USED FOR UNKNOWN INDICATION
     Dosage: 40 MG, UNK
     Route: 048

REACTIONS (8)
  - MENTAL DISORDER [None]
  - ARTHRALGIA [None]
  - WITHDRAWAL SYNDROME [None]
  - DRUG INEFFECTIVE [None]
  - NAUSEA [None]
  - PYREXIA [None]
  - HYPERSENSITIVITY [None]
  - GASTROINTESTINAL DISORDER [None]
